FAERS Safety Report 5399260-2 (Version None)
Quarter: 2007Q3

REPORT INFORMATION
  Report Type: 
  Country: None (occurrence: None)
  Receive Date: 20070727
  Receipt Date: 20070720
  Transmission Date: 20080115
  Serious: Yes (Hospitalization)
  Sender: FDA-Public Use
  Company Number: B0474353A

PATIENT
  Age: 83 Year
  Sex: Male
  Weight: 41 kg

DRUGS (10)
  1. VALTREX [Suspect]
     Indication: HERPES ZOSTER
     Dosage: 500MG SEE DOSAGE TEXT
     Route: 048
     Dates: start: 20070603, end: 20070606
  2. RIVOTRIL [Concomitant]
     Indication: PSYCHOMOTOR SEIZURES
     Dosage: .5MG PER DAY
     Route: 048
  3. SENNOSIDE [Concomitant]
     Indication: CONSTIPATION
     Dosage: 60MG PER DAY
     Route: 048
  4. GLUFAST [Concomitant]
     Dosage: 30MG PER DAY
     Route: 048
  5. JAPANESE MEDICATION [Concomitant]
     Indication: ARTERIOSCLEROSIS OBLITERANS
     Dosage: 100MG PER DAY
     Route: 048
  6. MICARDIS [Concomitant]
     Indication: HYPERTENSION
     Dosage: 40MG PER DAY
     Route: 048
  7. JAPANESE MEDICATION [Concomitant]
     Indication: CONSTIPATION
     Dosage: 7.5MG PER DAY
     Route: 048
  8. GASPORT [Concomitant]
     Indication: GASTRITIS
     Dosage: 20MG PER DAY
     Route: 048
  9. MUCOSTA [Concomitant]
     Indication: GASTRITIS
     Dosage: 300MG PER DAY
     Route: 048
  10. MYTEAR [Concomitant]
     Indication: RETINITIS
     Route: 031

REACTIONS (5)
  - ALTERED STATE OF CONSCIOUSNESS [None]
  - BLOOD SODIUM DECREASED [None]
  - DELIRIUM [None]
  - DYSARTHRIA [None]
  - EATING DISORDER [None]
